FAERS Safety Report 4497123-8 (Version None)
Quarter: 2004Q3

REPORT INFORMATION
  Report Type: 
  Country: None (occurrence: None)
  Receive Date: 20040927
  Receipt Date: 20040526
  Transmission Date: 20050211
  Serious: No
  Sender: FDA-Public Use
  Company Number: USA040568602

PATIENT
  Age: 7 Year
  Sex: Male
  Weight: 23 kg

DRUGS (2)
  1. STRATTERA [Suspect]
     Indication: ATTENTION DEFICIT/HYPERACTIVITY DISORDER
     Dosage: 25 MG DAY
     Dates: start: 20040525
  2. CONCERTA [Concomitant]

REACTIONS (5)
  - ANGER [None]
  - DECREASED APPETITE [None]
  - DEPRESSION [None]
  - MOOD SWINGS [None]
  - SCREAMING [None]
